FAERS Safety Report 5883957-1 (Version None)
Quarter: 2008Q3

REPORT INFORMATION
  Report Type: 
  Country: None (occurrence: None)
  Receive Date: 20080915
  Receipt Date: 20080901
  Transmission Date: 20090109
  Serious: Yes (Hospitalization, Other)
  Sender: FDA-Public Use
  Company Number: PT-ROCHE-584600

PATIENT
  Age: 62 Year
  Sex: Female

DRUGS (2)
  1. PEG-INTERFERON ALFA NOS [Suspect]
     Route: 065
  2. RIBAVIRIN [Suspect]
     Route: 065

REACTIONS (2)
  - LYMPHADENITIS [None]
  - TUBERCULOSIS [None]
